FAERS Safety Report 6732262-X (Version None)
Quarter: 2010Q2

REPORT INFORMATION
  Report Type: 
  Country: None (occurrence: None)
  Receive Date: 20100519
  Receipt Date: 20100511
  Transmission Date: 20101027
  Serious: Yes (Life-Threatening)
  Sender: FDA-Public Use
  Company Number: B0640828A

PATIENT
  Sex: Female

DRUGS (4)
  1. ARIXTRA [Suspect]
     Indication: THROMBOSIS PROPHYLAXIS
     Dosage: 1.5MG PER DAY
     Route: 058
     Dates: start: 20091226, end: 20091230
  2. LOXONIN [Concomitant]
     Indication: ANALGESIC THERAPY
     Route: 065
     Dates: start: 20091225, end: 20091228
  3. FAMOTIDINE [Concomitant]
     Route: 065
  4. OMEPRAL [Concomitant]
     Route: 048
     Dates: start: 20091228

REACTIONS (3)
  - MELAENA [None]
  - POST PROCEDURAL HAEMORRHAGE [None]
  - SHOCK [None]
